FAERS Safety Report 8604629 (Version 4)
Quarter: 2012Q4

REPORT INFORMATION
  Report Type: 
  Country: US (occurrence: US)
  Receive Date: 20120608
  Receipt Date: 20120828
  Transmission Date: 20130627
  Serious: No
  Sender: FDA-Public Use
  Company Number: US-PFIZER INC-2012135540

PATIENT
  Age: 43 Year
  Sex: Female
  Weight: 78.01 kg

DRUGS (21)
  1. LYRICA [Suspect]
     Indication: FIBROMYALGIA
     Dosage: 150 mg, 3x/day
     Route: 048
     Dates: start: 20110304, end: 201205
  2. LYRICA [Suspect]
     Dosage: 50 mg, 3x/day
     Route: 048
     Dates: start: 20110329, end: 201205
  3. CLONAZEPAM [Suspect]
     Indication: ANXIETY
     Dosage: 1 mg, 1/2-1, 3x/day, prn
     Route: 048
     Dates: start: 20111111
  4. KLONOPIN [Suspect]
     Indication: STRESS
     Dosage: 1mg, 1/2 to 1 tablet, 3 times a day
     Route: 048
  5. KLONOPIN [Suspect]
     Indication: ANXIETY
  6. LORTAB [Suspect]
     Indication: FIBROMYALGIA
     Dosage: 10-500 mg,1-2 every 6-8 hours, PRN
     Route: 048
     Dates: start: 20120608
  7. LORTAB [Suspect]
     Indication: SPONDYLITIS
  8. LORTAB [Suspect]
     Indication: ARTHRITIS
  9. LORTAB [Suspect]
     Indication: PAIN
  10. RANITIDINE [Concomitant]
     Indication: GASTRIC DISORDER
     Dosage: 150 mg, 3x/day
  11. RANITIDINE [Concomitant]
     Dosage: 150 mg, 2x/day
     Dates: start: 20120320
  12. TIZANIDINE [Concomitant]
     Indication: SPONDYLITIS
     Dosage: 4 mg, 2x/day (1-2 tablets at bedtime(HS) if needed)
     Route: 048
     Dates: start: 20120507
  13. TIZANIDINE [Concomitant]
     Indication: ARTHRITIS
  14. TIZANIDINE [Concomitant]
     Indication: MUSCLE SPASMS
  15. TIZANIDINE [Concomitant]
     Indication: MUSCLE SPASMS
  16. CITALOPRAM [Concomitant]
     Indication: DEPRESSION
     Dosage: 40 mg, daily
     Route: 048
     Dates: start: 20110304
  17. CITALOPRAM [Concomitant]
     Indication: ANXIETY
  18. LORATADINE [Concomitant]
     Dosage: 10 mg, 1x/day
     Route: 048
     Dates: start: 20120128
  19. HYDROCHLOROTHIAZIDE [Concomitant]
     Indication: SWELLING
     Dosage: 25 mg, 1/2-1 every morning as needed for LE swelling
     Route: 048
     Dates: start: 20120128
  20. CLARITIN [Concomitant]
     Indication: HYPERSENSITIVITY
     Dosage: 10 mg, daily
     Dates: start: 20110304
  21. ZANTAC [Concomitant]
     Indication: GASTROOESOPHAGEAL REFLUX DISEASE
     Dosage: 150 mg, 2x/day
     Dates: start: 20110304

REACTIONS (11)
  - Withdrawal syndrome [Recovering/Resolving]
  - Nervousness [Recovering/Resolving]
  - Cold sweat [Recovering/Resolving]
  - Diarrhoea [Recovering/Resolving]
  - Pain [Recovering/Resolving]
  - Malaise [Recovering/Resolving]
  - Vomiting [Recovering/Resolving]
  - Pain in extremity [Recovering/Resolving]
  - Headache [Recovering/Resolving]
  - Anxiety [Unknown]
  - Feeling abnormal [Unknown]
